FAERS Safety Report 5261266-1 (Version None)
Quarter: 2007Q1

REPORT INFORMATION
  Report Type: 
  Country: None (occurrence: None)
  Receive Date: 20070309
  Receipt Date: 20070228
  Transmission Date: 20070707
  Serious: Yes (Other)
  Sender: FDA-Public Use
  Company Number: JP-PFIZER INC-2007016560

PATIENT
  Age: 53 Year
  Sex: Female

DRUGS (6)
  1. LIPITOR [Suspect]
     Dosage: DAILY DOSE:5MG
     Route: 048
     Dates: start: 20060303, end: 20070101
  2. HERBAL PREPARATION [Suspect]
     Route: 048
  3. LOXONIN [Concomitant]
     Route: 048
  4. JUVELA [Concomitant]
     Route: 048
  5. MERISLON [Concomitant]
     Route: 048
  6. CLARITIN [Concomitant]
     Route: 048

REACTIONS (4)
  - ABDOMINAL PAIN [None]
  - CATARACT [None]
  - DIZZINESS [None]
  - HEPATIC ENZYME INCREASED [None]
